FAERS Safety Report 20176882 (Version 1)
Quarter: 2021Q4

REPORT INFORMATION
  Report Type: Spontaneous
  Country: US (occurrence: US)
  Receive Date: 20211213
  Receipt Date: 20211213
  Transmission Date: 20220304
  Serious: No
  Sender: FDA-Public Use
  Company Number: US-TAKEDA-2021TUS078374

PATIENT
  Age: 75 Year
  Sex: Male

DRUGS (1)
  1. FEIBA NF [Suspect]
     Active Substance: ANTI-INHIBITOR COAGULANT COMPLEX
     Indication: Factor VIII deficiency
     Dosage: 7566 INTERNATIONAL UNIT, Q12H
     Route: 042

REACTIONS (1)
  - Plasma cell disorder [Unknown]
